FAERS Safety Report 6083895-8 (Version None)
Quarter: 2009Q1

REPORT INFORMATION
  Report Type: 
  Country: None (occurrence: None)
  Receive Date: 20090219
  Receipt Date: 20090213
  Transmission Date: 20090719
  Serious: Yes (Death)
  Sender: FDA-Public Use
  Company Number: FR-AVENTIS-200910537FR

PATIENT
  Age: 65 Year
  Sex: Male

DRUGS (8)
  1. LOVENOX [Suspect]
     Indication: MYOCARDIAL INFARCTION
     Route: 058
     Dates: start: 20090107, end: 20090116
  2. BISOPROLOL FUMARATE [Concomitant]
     Indication: SINUS TACHYCARDIA
     Route: 048
     Dates: start: 20090114
  3. KARDEGIC                           /00002703/ [Concomitant]
     Indication: DRUG USE FOR UNKNOWN INDICATION
     Route: 048
     Dates: start: 20090115
  4. DEPAMIDE [Concomitant]
     Indication: BIPOLAR DISORDER
  5. IMOVANE [Concomitant]
     Indication: DRUG USE FOR UNKNOWN INDICATION
     Route: 048
  6. TERCIAN                            /00759301/ [Concomitant]
     Indication: DRUG USE FOR UNKNOWN INDICATION
  7. TRANXENE [Concomitant]
     Indication: DRUG USE FOR UNKNOWN INDICATION
     Route: 048
  8. OMEPRAZOLE [Concomitant]
     Indication: DRUG USE FOR UNKNOWN INDICATION

REACTIONS (3)
  - CEREBROVASCULAR ACCIDENT [None]
  - EXTREMITY NECROSIS [None]
  - FAT EMBOLISM [None]
